FAERS Safety Report 6201670-8 (Version None)
Quarter: 2009Q2

REPORT INFORMATION
  Report Type: 
  Country: None (occurrence: None)
  Receive Date: 20090526
  Receipt Date: 20080905
  Transmission Date: 20091009
  Serious: No
  Sender: FDA-Public Use
  Company Number: US-BRISTOL-MYERS SQUIBB COMPANY-14326375

PATIENT

DRUGS (2)
  1. BARACLUDE [Suspect]
  2. CHEMOTHERAPY [Suspect]

REACTIONS (1)
  - LEUKOPENIA [None]
